FAERS Safety Report 23091377 (Version 2)
Quarter: 2024Q1

REPORT INFORMATION
  Report Type: Report from Study
  Country: NL (occurrence: NL)
  Receive Date: 20231020
  Receipt Date: 20240110
  Transmission Date: 20240410
  Serious: Yes (Other)
  Sender: FDA-Public Use
  Company Number: NL-ABBVIE-5434056

PATIENT
  Sex: Female

DRUGS (17)
  1. METHOTREXATE SODIUM [Suspect]
     Active Substance: METHOTREXATE SODIUM
     Dosage: UNK
     Route: 065
  2. HYDROCORTISONE SODIUM SUCCINATE [Suspect]
     Active Substance: HYDROCORTISONE SODIUM SUCCINATE
     Indication: Crohn^s disease
     Dosage: UNK
     Route: 065
     Dates: start: 2013
  3. CLEMASTINE [Suspect]
     Active Substance: CLEMASTINE
     Indication: Crohn^s disease
     Route: 065
     Dates: start: 2013
  4. REMICADE [Suspect]
     Active Substance: INFLIXIMAB
     Indication: Crohn^s disease
     Route: 065
  5. PREDNISONE [Suspect]
     Active Substance: PREDNISONE
     Indication: Crohn^s disease
     Route: 065
  6. MESALAMINE [Suspect]
     Active Substance: MESALAMINE
     Indication: Crohn^s disease
     Route: 065
  7. PURINETHOL [Suspect]
     Active Substance: MERCAPTOPURINE
     Indication: Crohn^s disease
     Route: 065
  8. AZATHIOPRINE [Suspect]
     Active Substance: AZATHIOPRINE
     Indication: Crohn^s disease
     Route: 065
  9. USTEKINUMAB [Suspect]
     Active Substance: USTEKINUMAB
     Dosage: FORM STRENGTH: 90 MG
     Route: 065
     Dates: start: 20170803
  10. USTEKINUMAB [Suspect]
     Active Substance: USTEKINUMAB
     Dosage: FORM STRENGTH: 90 MG
     Route: 065
     Dates: start: 2022
  11. BUDESONIDE [Suspect]
     Active Substance: BUDESONIDE
     Indication: Crohn^s disease
     Route: 065
  12. HUMIRA [Suspect]
     Active Substance: ADALIMUMAB
     Indication: Crohn^s disease
     Route: 058
  13. ENTOCORT [Suspect]
     Active Substance: BUDESONIDE
     Indication: Crohn^s disease
     Route: 065
  14. STELARA [Suspect]
     Active Substance: USTEKINUMAB
     Indication: Crohn^s disease
     Dosage: FORM STRENGTH: 45 MG
     Route: 065
     Dates: start: 201901
  15. THIOGUANINE ANHYDROUS [Suspect]
     Active Substance: THIOGUANINE ANHYDROUS
     Indication: Crohn^s disease
     Route: 065
  16. VEDOLIZUMAB [Suspect]
     Active Substance: VEDOLIZUMAB
     Indication: Crohn^s disease
     Route: 065
  17. RINVOQ [Suspect]
     Active Substance: UPADACITINIB
     Indication: Crohn^s disease
     Dosage: 45 MILLIGRAMSFIRST 3 MONTHS.

REACTIONS (18)
  - Intestinal anastomosis [Unknown]
  - Appendicectomy [Unknown]
  - Colostomy [Unknown]
  - Crohn^s disease [Unknown]
  - Cervix carcinoma stage 0 [Unknown]
  - Pancreatitis [Unknown]
  - Ileocaecal resection [Unknown]
  - Rash [Unknown]
  - Condition aggravated [Not Recovered/Not Resolved]
  - Muscle spasms [Unknown]
  - Myalgia [Unknown]
  - Mental disorder [Unknown]
  - Serum sickness [Unknown]
  - Mucosal disorder [Unknown]
  - Impaired healing [Unknown]
  - Therapeutic product effect decreased [Unknown]
  - Social problem [Unknown]
  - Skin disorder [Unknown]

NARRATIVE: CASE EVENT DATE: 20000101
